FAERS Safety Report 15019439 (Version 1)
Quarter: 2018Q2

REPORT INFORMATION
  Report Type: Spontaneous
  Country: US (occurrence: US)
  Receive Date: 20180524
  Receipt Date: 20180524
  Transmission Date: 20180711
  Serious: Yes (Hospitalization)
  Sender: FDA-Public Use
  Company Number: None

PATIENT
  Age: 51 Year
  Sex: Female

DRUGS (5)
  1. GLEOSTINE [Suspect]
     Active Substance: LOMUSTINE
     Indication: BRAIN NEOPLASM MALIGNANT
     Route: 048
     Dates: start: 20171018
  2. HYDROCODONE [Concomitant]
     Active Substance: HYDROCODONE
  3. KEPPRA [Concomitant]
     Active Substance: LEVETIRACETAM
  4. PROZAC [Concomitant]
     Active Substance: FLUOXETINE HYDROCHLORIDE
  5. LITHIUIM [Concomitant]

REACTIONS (3)
  - Weight decreased [None]
  - Seizure [None]
  - Constipation [None]
